FAERS Safety Report 8131287-X (Version None)
Quarter: 2012Q1

REPORT INFORMATION
  Report Type: 
  Country: None (occurrence: None)
  Receive Date: 20120210
  Receipt Date: 20120210
  Transmission Date: 20120608
  Serious: Yes (Hospitalization)
  Sender: FDA-Public Use
  Company Number: None

PATIENT
  Age: 80 Year
  Sex: Male
  Weight: 87.3 kg

DRUGS (1)
  1. ATENOLOL [Suspect]
     Indication: HYPERTENSION
     Dosage: 50 MG EVERY DAY PO
     Route: 048
     Dates: start: 20000504, end: 20111129

REACTIONS (11)
  - CHEST PAIN [None]
  - TREMOR [None]
  - SYNCOPE [None]
  - HEAD INJURY [None]
  - NAUSEA [None]
  - DIZZINESS [None]
  - ASTHENIA [None]
  - BRADYCARDIA [None]
  - ABDOMINAL PAIN UPPER [None]
  - FALL [None]
  - GASTROOESOPHAGEAL REFLUX DISEASE [None]
